FAERS Safety Report 22143675 (Version 1)
Quarter: 2023Q1

REPORT INFORMATION
  Report Type: Spontaneous
  Country: US (occurrence: US)
  Receive Date: 20230327
  Receipt Date: 20230327
  Transmission Date: 20230418
  Serious: Yes (Other)
  Sender: FDA-Public Use
  Company Number: US-APIL-2308700US

PATIENT
  Sex: Male

DRUGS (1)
  1. REFRESH TEARS [Suspect]
     Active Substance: CARBOXYMETHYLCELLULOSE SODIUM
     Indication: Dry eye

REACTIONS (5)
  - Macular degeneration [Unknown]
  - Glaucoma [Unknown]
  - Lens dislocation [Unknown]
  - Dacryostenosis acquired [Unknown]
  - Dry eye [Unknown]
